FAERS Safety Report 13784714 (Version 2)
Quarter: 2017Q3

REPORT INFORMATION
  Report Type: Spontaneous
  Country: US (occurrence: US)
  Receive Date: 20170725
  Receipt Date: 20170809
  Transmission Date: 20171127
  Serious: No
  Sender: FDA-Public Use
  Company Number: US-009507513-1707USA006032

PATIENT
  Sex: Male

DRUGS (1)
  1. ASMANEX [Suspect]
     Active Substance: MOMETASONE FUROATE
     Indication: COUGH
     Dosage: 220 MCG/ 2 PUFFS DAILY
     Route: 048
     Dates: start: 2017

REACTIONS (2)
  - Drug dose omission [Unknown]
  - Product quality issue [Unknown]

NARRATIVE: CASE EVENT DATE: 2017
